FAERS Safety Report 7414308-9 (Version None)
Quarter: 2011Q2

REPORT INFORMATION
  Report Type: 
  Country: None (occurrence: None)
  Receive Date: 20110411
  Receipt Date: 20110411
  Transmission Date: 20111010
  Serious: Yes (Life-Threatening, Hospitalization)
  Sender: FDA-Public Use
  Company Number: None

PATIENT
  Age: 21 Year
  Sex: Male
  Weight: 90.7194 kg

DRUGS (2)
  1. CHANTIX [Suspect]
     Indication: SMOKING CESSATION THERAPY
     Dosage: .5 MG 1 B.I.D. PO
     Route: 048
     Dates: start: 20110102, end: 20110131
  2. CHANTIX [Suspect]
     Indication: NICOTINE DEPENDENCE
     Dosage: .5 MG 1 B.I.D. PO
     Route: 048
     Dates: start: 20110102, end: 20110131

REACTIONS (12)
  - DEPRESSION [None]
  - ABNORMAL DREAMS [None]
  - ALCOHOL USE [None]
  - ANXIETY [None]
  - ASTHENIA [None]
  - INSOMNIA [None]
  - DEPRESSED MOOD [None]
  - FEELINGS OF WORTHLESSNESS [None]
  - LIBIDO DECREASED [None]
  - MEMORY IMPAIRMENT [None]
  - MULTIPLE DRUG OVERDOSE INTENTIONAL [None]
  - SUICIDE ATTEMPT [None]
